FAERS Safety Report 8015425-5 (Version None)
Quarter: 2011Q4

REPORT INFORMATION
  Report Type: 
  Country: None (occurrence: None)
  Receive Date: 20111230
  Receipt Date: 20111219
  Transmission Date: 20120403
  Serious: Yes (Other)
  Sender: FDA-Public Use
  Company Number: US-BRISTOL-MYERS SQUIBB COMPANY-16316739

PATIENT
  Age: 62 Year
  Sex: Male

DRUGS (3)
  1. DOXORUBICIN HYDROCHLORIDE [Suspect]
     Indication: HEPATIC NEOPLASM MALIGNANT
     Route: 014
  2. MITOMYCIN [Suspect]
     Indication: HEPATIC NEOPLASM MALIGNANT
     Dosage: INJ
     Route: 014
  3. CISPLATIN [Suspect]
     Indication: HEPATIC NEOPLASM MALIGNANT
     Route: 014

REACTIONS (1)
  - GASTRIC STENOSIS [None]
